FAERS Safety Report 8236130 (Version 3)
Quarter: 2015Q4

REPORT INFORMATION
  Report Type: Spontaneous
  Country: JP (occurrence: JP)
  Receive Date: 20111108
  Receipt Date: 20151204
  Transmission Date: 20160305
  Serious: Yes (Other)
  Sender: FDA-Public Use
  Company Number: JP-GLAXOSMITHKLINE-B0712870A

PATIENT
  Sex: Female

DRUGS (4)
  1. SERETIDE [Concomitant]
     Active Substance: FLUTICASONE FUROATE\SALMETEROL XINAFOATE
  2. FLUTICASONE PROPIONATE (DISKUS) [Suspect]
     Active Substance: FLUTICASONE PROPIONATE
     Dosage: 400 ?G, 1D
     Route: 055
  3. FLUTICASONE PROPIONATE (DISKUS) [Suspect]
     Active Substance: FLUTICASONE PROPIONATE
     Dosage: 200 ?G, 1D
     Route: 055
  4. FLUTICASONE PROPIONATE (DISKUS) [Suspect]
     Active Substance: FLUTICASONE PROPIONATE
     Dosage: 200 ?G, 1D
     Route: 055

REACTIONS (4)
  - Adrenal suppression [Recovered/Resolved]
  - Overdose [Unknown]
  - Adrenal insufficiency [Recovered/Resolved]
  - Drug ineffective [Unknown]
